FAERS Safety Report 8581178-5 (Version None)
Quarter: 2012Q3

REPORT INFORMATION
  Report Type: 
  Country: None (occurrence: None)
  Receive Date: 20120809
  Receipt Date: 20120730
  Transmission Date: 20120928
  Serious: Yes (Hospitalization, Other)
  Sender: FDA-Public Use
  Company Number: US-BAYER-2012-041784

PATIENT
  Age: 32 Year
  Sex: Female
  Weight: 98 kg

DRUGS (2)
  1. THERAFLU [Concomitant]
     Indication: NASOPHARYNGITIS
  2. YAZ [Suspect]
     Dosage: UNK
     Dates: start: 20100701, end: 20110101

REACTIONS (11)
  - ANHEDONIA [None]
  - HIRSUTISM [None]
  - CHOLECYSTECTOMY [None]
  - INJURY [None]
  - EMOTIONAL DISTRESS [None]
  - DYSPNOEA [None]
  - HAEMORRHAGE [None]
  - ABASIA [None]
  - PAIN [None]
  - ANXIETY [None]
  - DECREASED ACTIVITY [None]
